FAERS Safety Report 15529997 (Version 1)
Quarter: 2018Q4

REPORT INFORMATION
  Report Type: Report from Study
  Country: US (occurrence: US)
  Receive Date: 20181018
  Receipt Date: 20181018
  Transmission Date: 20190205
  Serious: Yes (Other)
  Sender: FDA-Public Use
  Company Number: US-AMGEN-USASL2018126168

PATIENT
  Age: 45 Year
  Sex: Female

DRUGS (1)
  1. REPATHA [Suspect]
     Active Substance: EVOLOCUMAB
     Indication: BLOOD CHOLESTEROL INCREASED
     Dosage: 140 MG, Q2WK
     Route: 058

REACTIONS (9)
  - Back pain [Unknown]
  - Skin irritation [Unknown]
  - Blood glucose increased [Unknown]
  - Abdominal wall haematoma [Unknown]
  - Blood creatine phosphokinase increased [Unknown]
  - Upper respiratory tract infection [Not Recovered/Not Resolved]
  - Blood pressure increased [Unknown]
  - Erythema [Unknown]
  - Injection site bruising [Unknown]

NARRATIVE: CASE EVENT DATE: 2018
